FAERS Safety Report 5921935-4 (Version None)
Quarter: 2008Q3

REPORT INFORMATION
  Report Type: 
  Country: None (occurrence: None)
  Receive Date: 20080909
  Receipt Date: 20080625
  Transmission Date: 20090109
  Serious: Yes (Death)
  Sender: FDA-Public Use
  Company Number: 163-20785-08061553

PATIENT
  Age: 51 Year
  Sex: Male

DRUGS (2)
  1. THALOMID [Suspect]
     Indication: MULTIPLE MYELOMA
     Dosage: 100 MG, 1 IN 1 D, ORAL ; 100 MG, 2 IN 1 D, ORAL
     Route: 048
     Dates: start: 20050813, end: 20060801
  2. THALOMID [Suspect]
     Indication: MULTIPLE MYELOMA
     Dosage: 100 MG, 1 IN 1 D, ORAL ; 100 MG, 2 IN 1 D, ORAL
     Route: 048
     Dates: start: 20060926, end: 20070301

REACTIONS (1)
  - CARDIAC FAILURE CONGESTIVE [None]
